FAERS Safety Report 17458575 (Version 1)
Quarter: 2020Q1

REPORT INFORMATION
  Report Type: Spontaneous
  Country: US (occurrence: US)
  Receive Date: 20200225
  Receipt Date: 20200225
  Transmission Date: 20200409
  Serious: No
  Sender: FDA-Public Use
  Company Number: US-JUBILANT CADISTA PHARMACEUTICALS-2019JUB00224

PATIENT
  Age: 41 Year
  Sex: Female
  Weight: 110.66 kg

DRUGS (4)
  1. VALSARTAN. [Suspect]
     Active Substance: VALSARTAN
     Indication: CARDIOVASCULAR DISORDER
  2. VALSARTAN. [Suspect]
     Active Substance: VALSARTAN
     Indication: ATRIOVENTRICULAR BLOCK
  3. ASPIRIN. [Concomitant]
     Active Substance: ASPIRIN
     Dosage: 81 MG, 1X/DAY
     Route: 048
  4. VALSARTAN. [Suspect]
     Active Substance: VALSARTAN
     Indication: HYPERTENSION
     Dosage: 80 MG, 1X/DAY AT NIGHT
     Route: 048
     Dates: start: 20020110, end: 201904

REACTIONS (17)
  - Fall [Recovered/Resolved]
  - Hyperphagia [Not Recovered/Not Resolved]
  - Paranasal sinus hypersecretion [Unknown]
  - Headache [Recovering/Resolving]
  - Alopecia [Not Recovered/Not Resolved]
  - Upper respiratory tract infection [Unknown]
  - Dysphonia [Not Recovered/Not Resolved]
  - Weight decreased [Recovered/Resolved]
  - Weight increased [Unknown]
  - Malaise [Unknown]
  - Vision blurred [Recovering/Resolving]
  - Cough [Recovered/Resolved]
  - Arthralgia [Unknown]
  - Seasonal allergy [Unknown]
  - Dizziness [Unknown]
  - Oropharyngeal pain [Not Recovered/Not Resolved]
  - Dysphagia [Not Recovered/Not Resolved]

NARRATIVE: CASE EVENT DATE: 20020110
